FAERS Safety Report 10131239 (Version 1)
Quarter: 2014Q2

REPORT INFORMATION
  Report Type: Spontaneous
  Country: US (occurrence: US)
  Receive Date: 20140428
  Receipt Date: 20140428
  Transmission Date: 20141212
  Serious: No
  Sender: FDA-Public Use
  Company Number: US-PFIZER INC-2014116615

PATIENT
  Age: 38 Year
  Sex: Female
  Weight: 59 kg

DRUGS (10)
  1. ALPRAZOLAM [Suspect]
     Indication: NERVE INJURY
     Dosage: 2 MG, 3X/DAY
     Route: 048
     Dates: start: 2009, end: 20140424
  2. ALPRAZOLAM [Suspect]
     Indication: CONVULSION
  3. ALPRAZOLAM [Suspect]
     Indication: SPINAL DISORDER
  4. ALPRAZOLAM [Suspect]
     Indication: PANIC DISORDER
  5. ALPRAZOLAM [Suspect]
     Indication: ANXIETY
  6. ALPRAZOLAM [Suspect]
     Indication: STRESS
  7. ZIPSOR [Concomitant]
     Indication: ANTIINFLAMMATORY THERAPY
     Dosage: UNK
  8. GABAPENTIN [Concomitant]
     Dosage: UNK
  9. PERCOCET [Concomitant]
     Dosage: 10/325MG, 4X/DAY
  10. ZOLOFT [Concomitant]
     Dosage: UNK

REACTIONS (1)
  - Drug withdrawal syndrome [Unknown]
